FAERS Safety Report 7804098-X (Version None)
Quarter: 2011Q4

REPORT INFORMATION
  Report Type: 
  Country: None (occurrence: None)
  Receive Date: 20111010
  Receipt Date: 20111003
  Transmission Date: 20120403
  Serious: Yes (Hospitalization)
  Sender: FDA-Public Use
  Company Number: US-VERTEX PHARMACEUTICALS INC.-AE-2011-001731

PATIENT
  Sex: Female

DRUGS (6)
  1. RIBAVIRIN [Concomitant]
     Route: 048
  2. INCIVEK [Suspect]
     Indication: HEPATITIS C
     Route: 048
     Dates: start: 20110801
  3. INCIVEK [Suspect]
     Route: 048
  4. RIBAVIRIN [Concomitant]
     Indication: HEPATITIS C
     Route: 048
     Dates: start: 20110801
  5. PEGASYS [Concomitant]
     Route: 058
  6. PEGASYS [Concomitant]
     Indication: HEPATITIS C
     Route: 058
     Dates: start: 20110801

REACTIONS (1)
  - TRANSIENT ISCHAEMIC ATTACK [None]
